FAERS Safety Report 7406203-6 (Version None)
Quarter: 2011Q2

REPORT INFORMATION
  Report Type: 
  Country: None (occurrence: None)
  Receive Date: 20110406
  Receipt Date: 20110406
  Transmission Date: 20111010
  Serious: Yes (Hospitalization)
  Sender: FDA-Public Use
  Company Number: None

PATIENT
  Age: 74 Year
  Sex: Male

DRUGS (2)
  1. INSULIN [Suspect]
     Indication: DIABETES MELLITUS
     Dosage: 5 UNITS TID SQ
     Route: 058
     Dates: start: 20090518
  2. INSULIN [Suspect]
     Dosage: 55 UNITS HS SQ
     Route: 058
     Dates: start: 20090518

REACTIONS (3)
  - NAUSEA [None]
  - HYPERGLYCAEMIA [None]
  - VOMITING [None]
